FAERS Safety Report 17965978 (Version 1)
Quarter: 2020Q2

REPORT INFORMATION
  Report Type: Spontaneous
  Country: PT (occurrence: PT)
  Receive Date: 20200630
  Receipt Date: 20200630
  Transmission Date: 20200714
  Serious: Yes (Other)
  Sender: FDA-Public Use
  Company Number: PT-GLAXOSMITHKLINE-PT2020GSK105096

PATIENT
  Age: 36 Year
  Sex: Male

DRUGS (5)
  1. LOPINAVIR+RITONAVIR [Interacting]
     Active Substance: LOPINAVIR\RITONAVIR
     Indication: HIV INFECTION
     Dosage: UNK, 400 MG/100 MG TWO TIMES PER DAY
  2. SAQUINAVIR [Concomitant]
     Active Substance: SAQUINAVIR
     Indication: HIV INFECTION
     Dosage: 1000 MG, BID
  3. TENOFOVIR DISOPROXIL FUMARATE. [Concomitant]
     Active Substance: TENOFOVIR DISOPROXIL FUMARATE
     Indication: HIV INFECTION
     Dosage: 300 MG, QD
  4. FLUTICASONE PROPIONATE+SALMETEROL XINAFOATE [Suspect]
     Active Substance: FLUTICASONE PROPIONATE\SALMETEROL XINAFOATE
     Indication: CHRONIC OBSTRUCTIVE PULMONARY DISEASE
     Dosage: UNK, 250 ?G/50 ?G TWO TIMES PER DAY
     Route: 055
  5. TIOTROPIUM BROMIDE [Concomitant]
     Active Substance: TIOTROPIUM BROMIDE
     Indication: CHRONIC OBSTRUCTIVE PULMONARY DISEASE
     Dosage: 18 UG, QD

REACTIONS (21)
  - Blood corticotrophin decreased [Recovering/Resolving]
  - Primary hypogonadism [Recovering/Resolving]
  - Osteoporosis [Recovering/Resolving]
  - Erectile dysfunction [Recovering/Resolving]
  - Drug interaction [Unknown]
  - Progressive muscular atrophy [Recovering/Resolving]
  - Hypothalamic pituitary adrenal axis suppression [Recovering/Resolving]
  - HIV lipodystrophy [Unknown]
  - Cushing^s syndrome [Unknown]
  - Osteonecrosis [Unknown]
  - Skin striae [Recovering/Resolving]
  - Central obesity [Recovering/Resolving]
  - Weight increased [Recovering/Resolving]
  - Gynaecomastia [Recovering/Resolving]
  - Cushingoid [Unknown]
  - Dyslipidaemia [Recovering/Resolving]
  - Lipohypertrophy [Recovering/Resolving]
  - Purpura [Recovering/Resolving]
  - Hypertension [Recovering/Resolving]
  - Cortisol decreased [Recovering/Resolving]
  - Oedema peripheral [Recovering/Resolving]
